FAERS Safety Report 7671445-1 (Version None)
Quarter: 2011Q3

REPORT INFORMATION
  Report Type: 
  Country: None (occurrence: None)
  Receive Date: 20110809
  Receipt Date: 20100721
  Transmission Date: 20111222
  Serious: No
  Sender: FDA-Public Use
  Company Number: US-BAYER-201031126NA

PATIENT
  Sex: Female

DRUGS (3)
  1. PENICILLIN [Concomitant]
  2. MIRENA [Suspect]
     Dosage: 20 MCG/24HR, CONT
     Route: 015
  3. CLINDAMYCIN [Concomitant]
     Dosage: UNK

REACTIONS (1)
  - NAUSEA [None]
